FAERS Safety Report 6821626-1 (Version None)
Quarter: 2010Q3

REPORT INFORMATION
  Report Type: 
  Country: None (occurrence: None)
  Receive Date: 20100707
  Receipt Date: 20090604
  Transmission Date: 20110219
  Serious: Yes (Other)
  Sender: FDA-Public Use
  Company Number: US-PFIZER INC-2009168778

PATIENT
  Sex: Female
  Weight: 61 kg

DRUGS (3)
  1. SERTRALINE HCL [Suspect]
     Indication: MENOPAUSAL SYMPTOMS
     Dates: start: 20071101, end: 20081201
  2. TIMOPTIC [Concomitant]
     Indication: GLAUCOMA
     Dosage: UNK
  3. XALATAN [Concomitant]
     Indication: GLAUCOMA
     Dosage: UNK

REACTIONS (9)
  - ARRHYTHMIA [None]
  - BUNDLE BRANCH BLOCK LEFT [None]
  - DIZZINESS [None]
  - ELECTROCARDIOGRAM ABNORMAL [None]
  - ELECTROCARDIOGRAM Q WAVE ABNORMAL [None]
  - ELECTROCARDIOGRAM T WAVE INVERSION [None]
  - ISCHAEMIA [None]
  - MYOCARDIAL INFARCTION [None]
  - TACHYCARDIA [None]
